FAERS Safety Report 8834835 (Version 3)
Quarter: 2012Q4

REPORT INFORMATION
  Report Type: 
  Country: JP (occurrence: JP)
  Receive Date: 20121010
  Receipt Date: 20121203
  Transmission Date: 20130627
  Serious: Yes (Disabling)
  Sender: FDA-Public Use
  Company Number: JP-GLAXOSMITHKLINE-B0836384A

PATIENT
  Age: 50 None
  Sex: Female

DRUGS (5)
  1. LAMICTAL [Suspect]
     Indication: EPILEPSY
     Dosage: 25MG Alternate days
     Route: 048
     Dates: start: 20120807, end: 20120820
  2. LAMICTAL [Suspect]
     Indication: EPILEPSY
     Dosage: 25MG Per day
     Route: 048
     Dates: start: 20120821, end: 20120903
  3. LAMICTAL [Suspect]
     Indication: EPILEPSY
     Dosage: 25MG Twice per day
     Route: 048
     Dates: start: 20120904, end: 20121003
  4. DEPAKENE-R [Concomitant]
     Indication: EPILEPSY
     Dosage: 800MG Per day
     Route: 048
  5. RIVOTRIL [Concomitant]
     Indication: EPILEPSY
     Dosage: 5MG Per day
     Route: 048

REACTIONS (7)
  - Rash generalised [Recovered/Resolved]
  - Oral mucosa erosion [Recovered/Resolved]
  - Eosinophilic pustular folliculitis [Recovered/Resolved]
  - Papule [Unknown]
  - Dermatitis contact [Unknown]
  - Pyrexia [Unknown]
  - Eosinophil percentage increased [Unknown]
